FAERS Safety Report 5535739-8 (Version None)
Quarter: 2007Q4

REPORT INFORMATION
  Report Type: 
  Country: None (occurrence: None)
  Receive Date: 20071206
  Receipt Date: 20070402
  Transmission Date: 20080405
  Serious: Yes (Hospitalization)
  Sender: FDA-Public Use
  Company Number: US-AMGEN-STX217934

PATIENT
  Sex: Female

DRUGS (1)
  1. ENBREL [Suspect]
     Indication: RHEUMATOID ARTHRITIS
     Route: 058
     Dates: start: 20001203

REACTIONS (8)
  - ARTHRALGIA [None]
  - DIZZINESS [None]
  - FALL [None]
  - FATIGUE [None]
  - INFECTED INSECT BITE [None]
  - INTERVERTEBRAL DISC PROTRUSION [None]
  - SKIN ULCER [None]
  - STAPHYLOCOCCAL INFECTION [None]
